FAERS Safety Report 10167808 (Version 3)
Quarter: 2014Q2

REPORT INFORMATION
  Report Type: Spontaneous
  Country: JP (occurrence: JP)
  Receive Date: 20140512
  Receipt Date: 20140527
  Transmission Date: 20141212
  Serious: Yes (Other)
  Sender: FDA-Public Use
  Company Number: PHHY2014JP056718

PATIENT
  Sex: Female

DRUGS (9)
  1. NEORAL [Suspect]
     Indication: INTERSTITIAL LUNG DISEASE
     Dosage: 50 MG, DAILY
     Route: 048
  2. NEORAL [Suspect]
     Indication: OFF LABEL USE
  3. BAKTAR [Suspect]
     Indication: INTERSTITIAL LUNG DISEASE
     Route: 048
  4. PREDNISOLONE [Concomitant]
     Indication: INTERSTITIAL LUNG DISEASE
     Dosage: 10 MG, UNK
     Route: 048
  5. PREDNISOLONE [Concomitant]
     Dosage: 45 MG, UNK
     Route: 048
  6. PREDNISOLONE [Concomitant]
     Dosage: 40 MG, UNK
     Route: 048
  7. FAMOTIDINE [Concomitant]
     Indication: INTERSTITIAL LUNG DISEASE
     Route: 048
  8. LEVOCETIRIZINE HYDROCHLORIDE [Concomitant]
     Indication: INTERSTITIAL LUNG DISEASE
     Route: 048
  9. MINODRONIC ACID [Concomitant]
     Indication: INTERSTITIAL LUNG DISEASE
     Route: 048

REACTIONS (8)
  - Stevens-Johnson syndrome [Unknown]
  - Hyperaemia [Unknown]
  - Oral mucosa erosion [Unknown]
  - Erythema [Recovered/Resolved]
  - Keratitis [Unknown]
  - Skin necrosis [Unknown]
  - Eye disorder [Recovering/Resolving]
  - Drug eruption [Unknown]
